FAERS Safety Report 25263187 (Version 2)
Quarter: 2025Q2

REPORT INFORMATION
  Report Type: Spontaneous
  Country: AR (occurrence: AR)
  Receive Date: 20250502
  Receipt Date: 20250506
  Transmission Date: 20250717
  Serious: Yes (Hospitalization, Other)
  Sender: NOVARTIS
  Company Number: AR-002147023-NVSC2025AR070093

PATIENT
  Sex: Female

DRUGS (4)
  1. TEGRETOL [Suspect]
     Active Substance: CARBAMAZEPINE
     Indication: Product used for unknown indication
     Dosage: UNK, TID
     Route: 065
     Dates: start: 1978, end: 1983
  2. CARBAMAZEPINE [Suspect]
     Active Substance: CARBAMAZEPINE
     Indication: Product used for unknown indication
     Route: 065
  3. LEVOTHYROXINE [Concomitant]
     Active Substance: LEVOTHYROXINE
     Indication: Product used for unknown indication
     Route: 065
     Dates: start: 202407
  4. METHOTREXATE SODIUM [Concomitant]
     Active Substance: METHOTREXATE SODIUM
     Indication: Product used for unknown indication
     Route: 065
     Dates: start: 202407

REACTIONS (27)
  - Trigeminal neuralgia [Unknown]
  - Dizziness [Unknown]
  - Vomiting [Unknown]
  - Syncope [Unknown]
  - Pain [Unknown]
  - General physical health deterioration [Unknown]
  - Illness [Unknown]
  - Infection [Unknown]
  - Renal failure [Unknown]
  - Hepatitis [Unknown]
  - Neoplasm [Unknown]
  - Sepsis [Unknown]
  - Neoplasm malignant [Unknown]
  - Gait disturbance [Unknown]
  - Anaemia [Unknown]
  - Polymyalgia rheumatica [Unknown]
  - Alopecia [Unknown]
  - Hypothyroidism [Unknown]
  - Immune system disorder [Unknown]
  - Acquired gene mutation [Unknown]
  - Underweight [Unknown]
  - Weight gain poor [Unknown]
  - Toxicity to various agents [Unknown]
  - Hallucination [Unknown]
  - Osteomyelitis [Unknown]
  - Scarlet fever [Unknown]
  - Pain in extremity [Unknown]
